FAERS Safety Report 9867226 (Version 2)
Quarter: 2014Q1

REPORT INFORMATION
  Report Type: Report from Study
  Country: FR (occurrence: FR)
  Receive Date: 20140204
  Receipt Date: 20140306
  Transmission Date: 20141002
  Serious: Yes (Hospitalization, Other)
  Sender: FDA-Public Use
  Company Number: FR-ALEXION PHARMACEUTICALS INC.-A201304347

PATIENT
  Sex: 0

DRUGS (18)
  1. ECULIZUMAB [Suspect]
     Indication: HAEMOLYTIC URAEMIC SYNDROME
     Dosage: 1200 MG, SINGLE
     Route: 042
     Dates: start: 20100920, end: 20100920
  2. ECULIZUMAB [Suspect]
     Dosage: 900 MG, QW
     Route: 042
     Dates: start: 20100928, end: 20101013
  3. ECULIZUMAB [Suspect]
     Dosage: 1200 MG, Q2W
     Route: 042
     Dates: start: 20101020, end: 20110908
  4. ECULIZUMAB [Suspect]
     Dosage: 900 MG, Q2W
     Route: 042
     Dates: start: 20110921, end: 20120521
  5. ECULIZUMAB [Suspect]
     Dosage: 900 MG, TIW
     Route: 042
     Dates: start: 20120611, end: 20130522
  6. ECULIZUMAB [Suspect]
     Dosage: 900 MG, QMONTH
     Route: 042
     Dates: start: 20130621
  7. TACROLIMUS [Concomitant]
     Indication: PROPHYLAXIS
     Dosage: 2.5 MG, QD
     Route: 048
     Dates: start: 20100915
  8. CORTANCYL [Concomitant]
     Indication: PROPHYLAXIS
     Dosage: 5 MG, QD
     Route: 048
     Dates: start: 20100915
  9. ORACILLINE [Concomitant]
     Indication: PROPHYLAXIS
     Dosage: UNK
     Route: 048
     Dates: start: 20100919
  10. DIFFU K [Concomitant]
     Indication: PROPHYLAXIS
     Dosage: UNK
     Route: 048
     Dates: start: 20101117
  11. TAHOR [Concomitant]
     Indication: DYSLIPIDAEMIA
     Dosage: 10 MG, QD
     Route: 048
     Dates: start: 20110502
  12. MAGNE-B6 [Concomitant]
     Indication: PROPHYLAXIS
     Dosage: UNK
     Route: 048
     Dates: start: 20101013
  13. PARIET [Concomitant]
     Indication: PROPHYLAXIS
     Dosage: UNK
     Route: 048
     Dates: start: 20120504
  14. PARIET [Concomitant]
     Dosage: UNK
     Route: 048
     Dates: start: 20120504
  15. AMLOR [Concomitant]
     Indication: PRODUCT USED FOR UNKNOWN INDICATION
     Dosage: 10 MG, QD
     Route: 065
  16. APROVEL [Concomitant]
     Indication: PRODUCT USED FOR UNKNOWN INDICATION
     Dosage: 75 MG, QD
     Route: 065
  17. ATENOLOL [Concomitant]
     Indication: PRODUCT USED FOR UNKNOWN INDICATION
     Dosage: 50 MG, QD
     Route: 065
  18. LUTERAN [Concomitant]
     Indication: PRODUCT USED FOR UNKNOWN INDICATION
     Dosage: 10 MG, QD
     Route: 065

REACTIONS (1)
  - Pyelonephritis [Recovered/Resolved]
